FAERS Safety Report 5262314-5 (Version None)
Quarter: 2007Q1

REPORT INFORMATION
  Report Type: 
  Country: None (occurrence: None)
  Receive Date: 20070308
  Receipt Date: 20070308
  Transmission Date: 20070707
  Serious: Yes (Other)
  Sender: FDA-Public Use
  Company Number: None

PATIENT
  Age: 59 Year
  Sex: Male
  Weight: 83.4619 kg

DRUGS (4)
  1. KEPPRA [Suspect]
     Indication: PAIN
     Dosage: 3 TABLETS TWICE DAILY ORALLY
     Route: 048
     Dates: start: 20070207, end: 20070216
  2. ENALAPRIL MALEATE [Concomitant]
  3. METOPROLOL SUCCINATE [Concomitant]
  4. FELODIPINE [Concomitant]

REACTIONS (2)
  - ABNORMAL BEHAVIOUR [None]
  - AGGRESSION [None]
